FAERS Safety Report 24578177 (Version 1)
Quarter: 2024Q4

REPORT INFORMATION
  Report Type: Report from Study
  Country: US (occurrence: US)
  Receive Date: 20241104
  Receipt Date: 20241104
  Transmission Date: 20250115
  Serious: Yes (Death, Other)
  Sender: JAZZ
  Company Number: US-JAZZ PHARMACEUTICALS-2024-US-019975

PATIENT
  Age: 37 Year
  Sex: Female

DRUGS (1)
  1. EPIDIOLEX [Suspect]
     Active Substance: CANNABIDIOL
     Indication: Lennox-Gastaut syndrome
     Dosage: 1.9 MILLILITER, BID, G-TUBE
     Dates: start: 202105

REACTIONS (1)
  - Death [Fatal]

NARRATIVE: CASE EVENT DATE: 20241023
